FAERS Safety Report 4959071-6 (Version None)
Quarter: 2006Q1

REPORT INFORMATION
  Report Type: 
  Country: None (occurrence: None)
  Receive Date: 20060328
  Receipt Date: 20060320
  Transmission Date: 20060701
  Serious: Yes (Other)
  Sender: FDA-Public Use
  Company Number: 200515117BCC

PATIENT
  Age: 80 Year
  Sex: Male
  Weight: 81.6475 kg

DRUGS (1)
  1. GENUINE BAYER CAPLETS (ACETYLSALICYLIC ACID) [Suspect]
     Indication: ARTHRALGIA
     Dosage: SEE IMAGE
     Route: 048
     Dates: start: 20050901

REACTIONS (4)
  - CONSTIPATION [None]
  - FLATULENCE [None]
  - INTESTINAL OBSTRUCTION [None]
  - NEOPLASM MALIGNANT [None]
